FAERS Safety Report 24769800 (Version 1)
Quarter: 2024Q4

REPORT INFORMATION
  Report Type: Spontaneous
  Country: BR (occurrence: BR)
  Receive Date: 20241224
  Receipt Date: 20241224
  Transmission Date: 20250114
  Serious: Yes (Death, Hospitalization, Other)
  Sender: NOVITIUM PHARMA
  Company Number: BR-NOVITIUMPHARMA-2024BRNVP02958

PATIENT
  Age: 48 Year
  Sex: Female

DRUGS (2)
  1. DEXAMETHASONE [Suspect]
     Active Substance: DEXAMETHASONE
     Indication: Product used for unknown indication
     Route: 030
  2. DICLOFENAC [Concomitant]
     Active Substance: DICLOFENAC
     Indication: Product used for unknown indication
     Route: 030

REACTIONS (7)
  - Mucormycosis [Fatal]
  - Multiple organ dysfunction syndrome [Fatal]
  - Necrotising fasciitis fungal [Fatal]
  - Acute kidney injury [Fatal]
  - Hyperaemia [Fatal]
  - Blister [Fatal]
  - Exposure via contaminated device [Fatal]
